FAERS Safety Report 6186644-8 (Version None)
Quarter: 2009Q2

REPORT INFORMATION
  Report Type: 
  Country: None (occurrence: None)
  Receive Date: 20090508
  Receipt Date: 20090508
  Transmission Date: 20091009
  Serious: Yes (Other)
  Sender: FDA-Public Use
  Company Number: None

PATIENT
  Sex: Female
  Weight: 59.8748 kg

DRUGS (2)
  1. DEPAKOTE [Suspect]
     Indication: CONVULSION
  2. DEPAKOTE [Suspect]
     Indication: TUBEROUS SCLEROSIS

REACTIONS (1)
  - CONVULSION [None]
